FAERS Safety Report 8275157-5 (Version None)
Quarter: 2012Q2

REPORT INFORMATION
  Report Type: 
  Country: None (occurrence: None)
  Receive Date: 20120411
  Receipt Date: 20120405
  Transmission Date: 20120825
  Serious: Yes (Other)
  Sender: FDA-Public Use
  Company Number: PHHY2012IT030115

PATIENT
  Sex: Male

DRUGS (1)
  1. AMOXICILLIN [Suspect]
     Indication: TOOTH ABSCESS
     Dosage: 1 DF, POSOLOGIC UNIT
     Route: 048
     Dates: start: 20120402, end: 20120402

REACTIONS (2)
  - LIP OEDEMA [None]
  - NAUSEA [None]
